FAERS Safety Report 5391702-1 (Version None)
Quarter: 2007Q3

REPORT INFORMATION
  Report Type: 
  Country: None (occurrence: None)
  Receive Date: 20070717
  Receipt Date: 20070702
  Transmission Date: 20080115
  Serious: Yes (Hospitalization)
  Sender: FDA-Public Use
  Company Number: T07-JPN-02910-01

PATIENT
  Age: 90 Year
  Sex: Male

DRUGS (12)
  1. MEMANTINE HCL [Suspect]
     Indication: DEMENTIA ALZHEIMER'S TYPE
     Dates: start: 20050908, end: 20070622
  2. MEMANTINE HCL [Suspect]
     Indication: DEMENTIA ALZHEIMER'S TYPE
     Dosage: 20 MG QD PO
     Route: 048
     Dates: start: 20070629
  3. DONEPEZIL HCL [Concomitant]
  4. AMBROXOL HYDROCHLORIDE [Concomitant]
  5. SENNA LEAF/SENNA POD [Concomitant]
  6. RANITIDINE HYDROCHLORIDE [Concomitant]
  7. TEPRENONE [Concomitant]
  8. URSODESOYXCHOLIC ACID [Concomitant]
  9. MIDODRINE HYDROCHLORIDE [Concomitant]
  10. PROPIVERINE HYDROCHLORIDE [Concomitant]
  11. MIANSERIN HYDROCHLORIDE [Concomitant]
  12. MAGNESIUM OXIDE [Concomitant]

REACTIONS (7)
  - C-REACTIVE PROTEIN INCREASED [None]
  - CHEST PAIN [None]
  - CHOLECYSTITIS [None]
  - CHOLELITHIASIS [None]
  - CONDITION AGGRAVATED [None]
  - HEART RATE INCREASED [None]
  - PYREXIA [None]
